FAERS Safety Report 24590701 (Version 1)
Quarter: 2024Q4

REPORT INFORMATION
  Report Type: Spontaneous
  Country: ES (occurrence: ES)
  Receive Date: 20241107
  Receipt Date: 20241107
  Transmission Date: 20250114
  Serious: Yes (Other)
  Sender: MERCK
  Company Number: None

PATIENT
  Age: 87 Year
  Sex: Female

DRUGS (9)
  1. METFORMIN HYDROCHLORIDE\SITAGLIPTIN PHOSPHATE [Suspect]
     Active Substance: METFORMIN HYDROCHLORIDE\SITAGLIPTIN PHOSPHATE
     Indication: Type 2 diabetes mellitus
     Dosage: 1.0 COMP OF
     Route: 048
     Dates: start: 20130919, end: 20241016
  2. ATORVASTATIN CALCIUM [Concomitant]
     Active Substance: ATORVASTATIN CALCIUM
     Indication: Gastrointestinal vascular malformation haemorrhagic
     Dosage: 20.0 MG DINNER
     Route: 048
     Dates: start: 20180331
  3. OMEPRAZOLE [Concomitant]
     Active Substance: OMEPRAZOLE
     Indication: Type 2 diabetes mellitus
     Dosage: 20.0 MG A-DE
     Route: 048
     Dates: start: 20100609
  4. FERPLEX [Concomitant]
     Indication: Iron deficiency anaemia
     Dosage: 800.0 MG A-DECE
     Route: 048
     Dates: start: 20220211
  5. ENALAPRIL [Concomitant]
     Active Substance: ENALAPRIL
     Indication: Iron deficiency anaemia
     Dosage: 20.0 MG DE
     Route: 048
     Dates: start: 20181115
  6. FEMARA [Concomitant]
     Active Substance: LETROZOLE
     Indication: Type 2 diabetes mellitus
     Dosage: 2.5 MG/24 H
     Route: 048
     Dates: start: 20140226
  7. BILASTINE [Concomitant]
     Active Substance: BILASTINE
     Indication: Type 2 diabetes mellitus
     Dosage: 20.0 MG/24 H AM
     Route: 048
     Dates: start: 20210629
  8. REPAGLINIDE [Concomitant]
     Active Substance: REPAGLINIDE
     Indication: Type 2 diabetes mellitus
     Dosage: 2.0 MG CO
     Route: 048
     Dates: start: 20230414
  9. FUROSEMIDE [Concomitant]
     Active Substance: FUROSEMIDE
     Indication: Product used for unknown indication
     Dosage: 40.0 MG EVERY 48 HOURS
     Route: 048
     Dates: start: 20240821

REACTIONS (1)
  - Chronic kidney disease [Unknown]

NARRATIVE: CASE EVENT DATE: 20241016
